FAERS Safety Report 23830599 (Version 4)
Quarter: 2024Q3

REPORT INFORMATION
  Report Type: Spontaneous
  Country: US (occurrence: US)
  Receive Date: 20240508
  Receipt Date: 20240716
  Transmission Date: 20241017
  Serious: Yes (Hospitalization, Other)
  Sender: HIKMA
  Company Number: US-HIKMA PHARMACEUTICALS USA INC.-US-H14001-24-03600

PATIENT
  Age: 75 Year
  Sex: Female
  Weight: 78 kg

DRUGS (6)
  1. LEUCOVORIN CALCIUM [Suspect]
     Active Substance: LEUCOVORIN CALCIUM
     Indication: Colon cancer
     Dosage: 780 MILLIGRAM, QOW
     Route: 042
     Dates: start: 20231213, end: 20240403
  2. LEUCOVORIN CALCIUM [Suspect]
     Active Substance: LEUCOVORIN CALCIUM
     Indication: Hepatocellular carcinoma
  3. ELOXATIN [Suspect]
     Active Substance: OXALIPLATIN
     Indication: Colon cancer
     Dosage: 167.5 MILLIGRAM, QOW
     Route: 042
     Dates: start: 20231213, end: 20240403
  4. FLUOROURACIL [Suspect]
     Active Substance: FLUOROURACIL
     Indication: Colon cancer
     Dosage: 390 MILLIGRAM, QOW
     Route: 042
     Dates: start: 20231213, end: 20240403
  5. FLUOROURACIL [Suspect]
     Active Substance: FLUOROURACIL
     Dosage: 4700 MILLIGRAM, QOW
     Route: 042
     Dates: start: 20231213, end: 20240405
  6. ZIRABEV [Suspect]
     Active Substance: BEVACIZUMAB-BVZR
     Indication: Hepatocellular carcinoma
     Dosage: 400 MILLIGRAM, QOW
     Route: 042
     Dates: start: 20231213, end: 20240403

REACTIONS (4)
  - Deep vein thrombosis [Recovered/Resolved with Sequelae]
  - Groin pain [Unknown]
  - Pain in extremity [Unknown]
  - Fibrin D dimer increased [Unknown]

NARRATIVE: CASE EVENT DATE: 20240417
